FAERS Safety Report 8317577-6 (Version None)
Quarter: 2012Q2

REPORT INFORMATION
  Report Type: 
  Country: None (occurrence: None)
  Receive Date: 20120427
  Receipt Date: 20111020
  Transmission Date: 20120825
  Serious: Yes (Hospitalization)
  Sender: FDA-Public Use
  Company Number: US-GLAXOSMITHKLINE-A0949909A

PATIENT
  Age: 17 Year

DRUGS (2)
  1. ZOFRAN [Suspect]
     Indication: NAUSEA
     Route: 042
     Dates: start: 20111014, end: 20111017
  2. ZOFRAN [Suspect]
     Route: 048
     Dates: start: 20111014, end: 20111017

REACTIONS (1)
  - VISUAL ACUITY REDUCED [None]
